FAERS Safety Report 6536790-1 (Version None)
Quarter: 2010Q1

REPORT INFORMATION
  Report Type: 
  Country: None (occurrence: None)
  Receive Date: 20100113
  Receipt Date: 20100107
  Transmission Date: 20100710
  Serious: Yes (Other)
  Sender: FDA-Public Use
  Company Number: IE-CVT-090810

PATIENT

DRUGS (2)
  1. RANEXA [Suspect]
     Indication: ANGINA PECTORIS
     Dates: start: 20091101, end: 20090101
  2. LOSARTAN [Concomitant]

REACTIONS (2)
  - CARDIAC FAILURE [None]
  - WEIGHT INCREASED [None]
